FAERS Safety Report 21233635 (Version 1)
Quarter: 2022Q3

REPORT INFORMATION
  Report Type: Report from Study
  Country: AU (occurrence: AU)
  Receive Date: 20220819
  Receipt Date: 20220819
  Transmission Date: 20221027
  Serious: Yes (Death, Other)
  Sender: FDA-Public Use
  Company Number: AU-JNJFOC-20220825391

PATIENT

DRUGS (1)
  1. FENTANYL [Suspect]
     Active Substance: FENTANYL
     Indication: Product used for unknown indication
     Route: 064

REACTIONS (5)
  - Death neonatal [Fatal]
  - Foetal distress syndrome [Unknown]
  - Premature baby [Unknown]
  - Apgar score low [Unknown]
  - Foetal exposure during pregnancy [Unknown]
